FAERS Safety Report 20385256 (Version 3)
Quarter: 2022Q3

REPORT INFORMATION
  Report Type: Report from Study
  Country: CA (occurrence: CA)
  Receive Date: 20220127
  Receipt Date: 20220707
  Transmission Date: 20221027
  Serious: Yes (Other)
  Sender: FDA-Public Use
  Company Number: CA-NOVARTISPH-NVSC2020CA122300

PATIENT
  Age: 9 Year
  Sex: Female

DRUGS (2)
  1. ILARIS [Suspect]
     Active Substance: CANAKINUMAB
     Indication: Still^s disease
     Dosage: 150 MG EVERY 5 WEEKS
     Route: 058
     Dates: start: 20150216, end: 20171201
  2. ILARIS [Suspect]
     Active Substance: CANAKINUMAB
     Dosage: 150 MG EVERY 5 WEEKS
     Route: 058
     Dates: start: 20200506

REACTIONS (7)
  - Juvenile idiopathic arthritis [Unknown]
  - Immunosuppression [Unknown]
  - Headache [Recovered/Resolved]
  - Illness [Unknown]
  - COVID-19 [Unknown]
  - Weight increased [Unknown]
  - Inappropriate schedule of product administration [Unknown]

NARRATIVE: CASE EVENT DATE: 20200416
